FAERS Safety Report 20074011 (Version 1)
Quarter: 2021Q4

REPORT INFORMATION
  Report Type: Spontaneous
  Country: US (occurrence: None)
  Receive Date: 20211115
  Receipt Date: 20211115
  Transmission Date: 20220303
  Serious: Yes (Hospitalization)
  Sender: FDA-Public Use
  Company Number: None

PATIENT
  Age: 42 Year
  Sex: Female
  Weight: 72 kg

DRUGS (11)
  1. CASIRIVIMAB\IMDEVIMAB [Suspect]
     Active Substance: CASIRIVIMAB\IMDEVIMAB
     Indication: COVID-19
     Dosage: FREQUENCY : ONCE;?
     Route: 042
     Dates: start: 20211108, end: 20211108
  2. Benzonatate (Tessalon Perles) [Concomitant]
     Dates: start: 20211108, end: 20211109
  3. Ondansetron (Zofran ODT) [Concomitant]
     Dates: start: 20211108
  4. Diclofenac sodium (Voltaren) 1% topical gel [Concomitant]
     Dates: start: 20201127
  5. Ibuprofen (Motrin) [Concomitant]
     Dates: start: 20211109
  6. Magnesium Oxide (Mag-Ox) [Concomitant]
     Dates: start: 20170428
  7. VITAMIN D3 [Concomitant]
     Active Substance: CHOLECALCIFEROL
     Dates: end: 20211112
  8. Levonorgestrel (Mirena) [Concomitant]
     Dates: start: 20210319
  9. VITAMIN B COMPLEX [Concomitant]
     Active Substance: CYANOCOBALAMIN\DEXPANTHENOL\NIACINAMIDE\PYRIDOXINE HYDROCHLORIDE\RIBOFLAVIN 5^-PHOSPHATE SODIUM\THIA
  10. ASCORBIC ACID [Concomitant]
     Active Substance: ASCORBIC ACID
  11. MultiVitamin w/Iron [Concomitant]

REACTIONS (8)
  - Pyrexia [None]
  - Dyspnoea [None]
  - Oxygen saturation decreased [None]
  - Alanine aminotransferase increased [None]
  - Aspartate aminotransferase increased [None]
  - Pneumonia [None]
  - Palpitations [None]
  - Acute respiratory failure [None]

NARRATIVE: CASE EVENT DATE: 20211109
